FAERS Safety Report 17218607 (Version 2)
Quarter: 2020Q1

REPORT INFORMATION
  Report Type: Spontaneous
  Country: DE (occurrence: DE)
  Receive Date: 20191231
  Receipt Date: 20200214
  Transmission Date: 20200409
  Serious: Yes (Hospitalization)
  Sender: FDA-Public Use
  Company Number: DE-ALLERGAN-1953496US

PATIENT
  Sex: Male

DRUGS (17)
  1. PIPAMPERONE [Suspect]
     Active Substance: PIPAMPERONE
     Indication: SLEEP DISORDER THERAPY
     Dosage: 40 MG, QD
     Route: 065
     Dates: start: 20190204
  2. CARIPRAZINE HCL - BP [Suspect]
     Active Substance: CARIPRAZINE HYDROCHLORIDE
     Dosage: 1.5 MG, QD
     Route: 065
     Dates: start: 20190201, end: 20190206
  3. DIAZEPAM. [Suspect]
     Active Substance: DIAZEPAM
     Dosage: 5 MG, QD
     Route: 065
     Dates: start: 20190304, end: 20190305
  4. LEVOTHYROXINE. [Concomitant]
     Active Substance: LEVOTHYROXINE
     Indication: PRODUCT USED FOR UNKNOWN INDICATION
     Dosage: 75 ?G, QD
     Route: 065
  5. DIAZEPAM. [Suspect]
     Active Substance: DIAZEPAM
     Dosage: 7.5 MG, QD
     Route: 065
     Dates: start: 20190306, end: 20190318
  6. DIAZEPAM. [Suspect]
     Active Substance: DIAZEPAM
     Dosage: 5 MG, QD
     Route: 065
     Dates: start: 20190218, end: 20190220
  7. HALDOL [Suspect]
     Active Substance: HALOPERIDOL
     Dosage: 10 MG, QD
     Route: 065
     Dates: start: 20190205, end: 20190307
  8. CARIPRAZINE HCL - BP [Suspect]
     Active Substance: CARIPRAZINE HYDROCHLORIDE
     Dosage: 4.5 MG, QD
     Route: 065
     Dates: start: 20190214, end: 20190220
  9. DIAZEPAM. [Suspect]
     Active Substance: DIAZEPAM
     Dosage: 2.5 MG, QD
     Route: 065
     Dates: start: 20190221, end: 20190227
  10. CARIPRAZINE HCL - BP [Suspect]
     Active Substance: CARIPRAZINE HYDROCHLORIDE
     Indication: PSYCHOTIC SYMPTOM
     Dosage: 6 MG, QD
     Dates: start: 20190221
  11. HALDOL [Suspect]
     Active Substance: HALOPERIDOL
     Indication: PSYCHOTIC SYMPTOM
     Dosage: 15 MG, QD
     Route: 065
     Dates: start: 20190208, end: 20190318
  12. ACETYLSALICYLIC ACID [Concomitant]
     Active Substance: ASPIRIN
     Indication: PRODUCT USED FOR UNKNOWN INDICATION
     Dosage: 100 MG, QD
     Route: 065
  13. HALDOL [Suspect]
     Active Substance: HALOPERIDOL
     Indication: SCHIZOPHRENIA
     Dosage: 12 MG, QD
     Route: 065
     Dates: start: 20190319
  14. CARIPRAZINE HCL - BP [Suspect]
     Active Substance: CARIPRAZINE HYDROCHLORIDE
     Dosage: 3 MG, QD
     Route: 065
     Dates: start: 20190207, end: 20190213
  15. DIAZEPAM. [Suspect]
     Active Substance: DIAZEPAM
     Indication: PSYCHOTIC SYMPTOM
     Dosage: 5 MG, QD
     Route: 065
     Dates: start: 20190319
  16. HALDOL [Suspect]
     Active Substance: HALOPERIDOL
     Dosage: 8 MG, QD
     Route: 065
     Dates: start: 20190118, end: 20190204
  17. DIAZEPAM. [Suspect]
     Active Substance: DIAZEPAM
     Dosage: 10 MG, QD
     Route: 065
     Dates: start: 20190208, end: 20190217

REACTIONS (7)
  - Hypersexuality [Recovered/Resolved]
  - Electrocardiogram QT prolonged [Unknown]
  - Treatment noncompliance [Unknown]
  - Psychotic symptom [Recovering/Resolving]
  - Aggression [Unknown]
  - Depression [Recovered/Resolved]
  - Sexual abuse [Unknown]

NARRATIVE: CASE EVENT DATE: 20190327
